FAERS Safety Report 19878265 (Version 1)
Quarter: 2021Q3

REPORT INFORMATION
  Report Type: Spontaneous
  Country: US (occurrence: US)
  Receive Date: 20210923
  Receipt Date: 20210923
  Transmission Date: 20211014
  Serious: Yes (Hospitalization)
  Sender: FDA-Public Use
  Company Number: NVSC2021US212963

PATIENT
  Age: 64 Year
  Sex: Female

DRUGS (1)
  1. HYCAMTIN [Suspect]
     Active Substance: TOPOTECAN HYDROCHLORIDE
     Indication: PRODUCT USED FOR UNKNOWN INDICATION
     Dosage: 3.75 MG (5 DAYS EVERY 3 WEEKS)
     Route: 048

REACTIONS (4)
  - Abdominal pain [Unknown]
  - White blood cell count decreased [Recovering/Resolving]
  - Diarrhoea haemorrhagic [Unknown]
  - Platelet count decreased [Recovering/Resolving]
